FAERS Safety Report 26123948 (Version 1)
Quarter: 2025Q4

REPORT INFORMATION
  Report Type: Spontaneous
  Country: US (occurrence: US)
  Receive Date: 20251205
  Receipt Date: 20251205
  Transmission Date: 20260118
  Serious: No
  Sender: CSL BEHRING
  Company Number: US-CSL-16960

PATIENT
  Age: 68 Year
  Sex: Female

DRUGS (1)
  1. VELTASSA [Suspect]
     Active Substance: PATIROMER
     Dosage: 8.4 G
     Route: 065
     Dates: start: 202510

REACTIONS (2)
  - Constipation [Unknown]
  - Haemorrhoids [Unknown]

NARRATIVE: CASE EVENT DATE: 20250101
